FAERS Safety Report 10173936 (Version 2)
Quarter: 2014Q2

REPORT INFORMATION
  Report Type: Spontaneous
  Country: BE (occurrence: BE)
  Receive Date: 20140515
  Receipt Date: 20140522
  Transmission Date: 20141212
  Serious: Yes (Hospitalization, Disabling)
  Sender: FDA-Public Use
  Company Number: BE-DSJP-DSE-2014-107387

PATIENT
  Sex: 0

DRUGS (1)
  1. OLMETEC 40 MG [Suspect]
     Indication: HYPERTENSION
     Dosage: 2800 MG, SINGLE
     Route: 048

REACTIONS (2)
  - Suicide attempt [Recovered/Resolved]
  - Overdose [Recovered/Resolved]
